FAERS Safety Report 19945828 (Version 3)
Quarter: 2022Q2

REPORT INFORMATION
  Report Type: Spontaneous
  Country: US (occurrence: US)
  Receive Date: 20211012
  Receipt Date: 20220414
  Transmission Date: 20220721
  Serious: No
  Sender: FDA-Public Use
  Company Number: US-MYOVANT SCIENCES GMBH-2021MYSCI0800467

PATIENT
  Age: 71 Year
  Sex: Male

DRUGS (4)
  1. ORGOVYX [Suspect]
     Active Substance: RELUGOLIX
     Indication: Prostate cancer
     Dosage: 360 MILLIGRAM, ONE TIME DOSE
     Route: 048
     Dates: start: 20210813, end: 20210813
  2. ORGOVYX [Suspect]
     Active Substance: RELUGOLIX
     Dosage: 240 MILLIGRAM, QD
     Route: 048
     Dates: start: 20210814
  3. APALUTAMIDE [Concomitant]
     Active Substance: APALUTAMIDE
     Indication: Product used for unknown indication
     Dosage: 240 MILLIGRAM, QD
     Route: 048
  4. APALUTAMIDE [Concomitant]
     Active Substance: APALUTAMIDE
     Dosage: UNK
     Route: 065

REACTIONS (13)
  - Feeling abnormal [Unknown]
  - Muscle tightness [Unknown]
  - Joint stiffness [Unknown]
  - Exercise tolerance decreased [Recovering/Resolving]
  - Myalgia [Not Recovered/Not Resolved]
  - Diarrhoea [Not Recovered/Not Resolved]
  - Asthenia [Not Recovered/Not Resolved]
  - Arthralgia [Not Recovered/Not Resolved]
  - Night sweats [Unknown]
  - Hot flush [Recovering/Resolving]
  - Fatigue [Recovering/Resolving]
  - Incorrect dose administered [Not Recovered/Not Resolved]
  - Somnolence [Unknown]

NARRATIVE: CASE EVENT DATE: 20210801
